FAERS Safety Report 22138176 (Version 1)
Quarter: 2023Q1

REPORT INFORMATION
  Report Type: Report from Study
  Country: US (occurrence: US)
  Receive Date: 20230325
  Receipt Date: 20230325
  Transmission Date: 20230418
  Serious: Yes (Hospitalization)
  Sender: FDA-Public Use
  Company Number: US-002147023-NVSC2023US066859

PATIENT
  Sex: Female
  Weight: 68.934 kg

DRUGS (1)
  1. TREPROSTINIL [Suspect]
     Active Substance: TREPROSTINIL
     Indication: Pulmonary arterial hypertension
     Dosage: (63 NG/KG/MIN), CONT
     Route: 058
     Dates: start: 20210910

REACTIONS (1)
  - Pancreatitis [Unknown]
